FAERS Safety Report 10705333 (Version 1)
Quarter: 2015Q1

REPORT INFORMATION
  Report Type: Spontaneous
  Country: FR (occurrence: FR)
  Receive Date: 20150112
  Receipt Date: 20150112
  Transmission Date: 20150721
  Serious: Yes (Hospitalization)
  Sender: FDA-Public Use
  Company Number: FR-PFIZER INC-2015006140

PATIENT
  Age: 85 Year
  Sex: Female

DRUGS (7)
  1. LYRICA [Interacting]
     Active Substance: PREGABALIN
     Dosage: 50 MG, 2X/DAY
     Route: 048
     Dates: start: 20141117, end: 20141117
  2. IXPRIM [Interacting]
     Active Substance: ACETAMINOPHEN\TRAMADOL HYDROCHLORIDE
     Dosage: 2 DF, 1X/DAY
     Route: 048
     Dates: start: 20141114, end: 20141117
  3. LYRICA [Interacting]
     Active Substance: PREGABALIN
     Dosage: UNK
     Route: 048
     Dates: start: 20141118, end: 20141202
  4. LYRICA [Suspect]
     Active Substance: PREGABALIN
     Dosage: 25 MG, 2X/DAY
     Route: 048
     Dates: start: 20141115, end: 20141116
  5. OFLOCET [Interacting]
     Active Substance: OFLOXACIN
     Indication: INTERVERTEBRAL DISCITIS
     Dosage: 200 MG, 2X/DAY
     Route: 048
     Dates: start: 20141106, end: 20141114
  6. OFLOCET [Interacting]
     Active Substance: OFLOXACIN
     Dosage: UNK
     Route: 048
     Dates: start: 20141117, end: 20141126
  7. IXPRIM [Interacting]
     Active Substance: ACETAMINOPHEN\TRAMADOL HYDROCHLORIDE
     Dosage: 6 DF, 1X/DAY
     Route: 048
     Dates: start: 20141118, end: 20141125

REACTIONS (2)
  - Drug interaction [Recovered/Resolved]
  - Hallucination, visual [Recovered/Resolved]

NARRATIVE: CASE EVENT DATE: 20141125
